FAERS Safety Report 25494241 (Version 1)
Quarter: 2025Q2

REPORT INFORMATION
  Report Type: Spontaneous
  Country: US (occurrence: US)
  Receive Date: 20250630
  Receipt Date: 20250630
  Transmission Date: 20250717
  Serious: Yes (Death, Hospitalization)
  Sender: MYLAN
  Company Number: US-MYLANLABS-2025M1054559

PATIENT
  Age: 1 Hour

DRUGS (3)
  1. EPINEPHRINE [Suspect]
     Active Substance: EPINEPHRINE
     Indication: Pulmonary haemorrhage
  2. COCAINE [Suspect]
     Active Substance: COCAINE
     Indication: Pulmonary haemorrhage neonatal
  3. COAGULATION FACTOR VIIA RECOMBINANT HUMAN [Suspect]
     Active Substance: COAGULATION FACTOR VIIA RECOMBINANT HUMAN
     Indication: Pulmonary haemorrhage neonatal

REACTIONS (1)
  - Drug ineffective [Fatal]
